FAERS Safety Report 4697118-5 (Version None)
Quarter: 2005Q2

REPORT INFORMATION
  Report Type: 
  Country: None (occurrence: None)
  Receive Date: 20050622
  Receipt Date: 20050616
  Transmission Date: 20051028
  Serious: Yes (Other)
  Sender: FDA-Public Use
  Company Number: US-MERCK-0506USA02681

PATIENT
  Age: 14 Year
  Sex: Male

DRUGS (8)
  1. VINCRISTINE SULFATE [Suspect]
     Indication: HODGKIN'S DISEASE
     Route: 065
  2. PROCARBAZINE [Suspect]
     Indication: HODGKIN'S DISEASE
     Route: 065
  3. PREDNISONE [Suspect]
     Indication: HODGKIN'S DISEASE
     Route: 065
  4. DOXORUBICIN [Suspect]
     Indication: HODGKIN'S DISEASE
     Route: 065
  5. BLEOMYCIN [Suspect]
     Indication: HODGKIN'S DISEASE
     Route: 065
  6. VINBLASTINE SULFATE [Suspect]
     Indication: HODGKIN'S DISEASE
     Route: 065
  7. [THERAPY UNSPECIFIED] [Suspect]
     Route: 065
  8. MUSTARGEN [Suspect]
     Indication: HODGKIN'S DISEASE
     Route: 065

REACTIONS (1)
  - BLADDER CANCER [None]
